FAERS Safety Report 12983050 (Version 1)
Quarter: 2016Q4

REPORT INFORMATION
  Report Type: Spontaneous
  Country: US (occurrence: US)
  Receive Date: 20161129
  Receipt Date: 20161129
  Transmission Date: 20170207
  Serious: No
  Sender: FDA-Public Use
  Company Number: US-MALLINCKRODT-T201601833

PATIENT
  Age: 65 Year
  Sex: Female
  Weight: 118 kg

DRUGS (2)
  1. NORCO [Suspect]
     Active Substance: ACETAMINOPHEN\HYDROCODONE BITARTRATE
     Indication: PAIN
     Dosage: 10/325, THREE OR FOUR TIMES DAILY
     Route: 048
     Dates: start: 2014
  2. FENTANYL TRANSDERMAL SYSTEM [Suspect]
     Active Substance: FENTANYL
     Indication: PAIN
     Dosage: 50 MCG/HR, ONE PATCH EVERY 72 HOURS
     Route: 062
     Dates: start: 2014, end: 20160424

REACTIONS (5)
  - Malaise [Unknown]
  - Nausea [Unknown]
  - Therapy cessation [Unknown]
  - Constipation [Recovered/Resolved]
  - Drug ineffective [Unknown]

NARRATIVE: CASE EVENT DATE: 2016
